FAERS Safety Report 7693741-4 (Version None)
Quarter: 2011Q3

REPORT INFORMATION
  Report Type: 
  Country: None (occurrence: None)
  Receive Date: 20110819
  Receipt Date: 20110815
  Transmission Date: 20111222
  Serious: Yes (Other)
  Sender: FDA-Public Use
  Company Number: EG-ROCHE-797133

PATIENT
  Age: 35 Year
  Sex: Male

DRUGS (2)
  1. PEGASYS [Suspect]
     Indication: HEPATITIS C
     Route: 058
     Dates: start: 20110701
  2. RIBAVIRIN [Suspect]
     Indication: HEPATITIS C
     Route: 048
     Dates: start: 20110701

REACTIONS (3)
  - HEPATIC ENZYME INCREASED [None]
  - PROTHROMBIN LEVEL DECREASED [None]
  - BLOOD BILIRUBIN INCREASED [None]
